FAERS Safety Report 8433383-6 (Version None)
Quarter: 2012Q2

REPORT INFORMATION
  Report Type: 
  Country: None (occurrence: None)
  Receive Date: 20120613
  Receipt Date: 20120601
  Transmission Date: 20120825
  Serious: Yes (Hospitalization)
  Sender: FDA-Public Use
  Company Number: FR-MERCK-1206USA01041

PATIENT
  Age: 65 Year
  Sex: Female

DRUGS (17)
  1. PRIMAXIN [Suspect]
     Route: 065
     Dates: start: 20120401, end: 20120406
  2. SPRYCEL [Suspect]
     Indication: ACUTE LEUKAEMIA
     Route: 065
     Dates: start: 20120307, end: 20120330
  3. METHOTREXATE [Concomitant]
     Dosage: INTRASPINAL ROUTE
     Route: 065
     Dates: start: 20120328, end: 20120329
  4. CYTARABINE [Concomitant]
     Dosage: INTRASPINAL ROUTE
     Route: 065
     Dates: start: 20120328, end: 20120329
  5. METHYLPREDNISOLONE [Concomitant]
     Dosage: INTRATHECAL ROUTE
     Route: 065
     Dates: start: 20120328, end: 20120329
  6. METHOTREXATE [Concomitant]
     Indication: ACUTE LEUKAEMIA
     Dosage: INTRASPINAL ROUTE
     Route: 065
     Dates: start: 20120307, end: 20120320
  7. VINCRISTINE SULFATE [Suspect]
     Indication: B-CELL TYPE ACUTE LEUKAEMIA
     Route: 065
     Dates: start: 20120307, end: 20120320
  8. VINCRISTINE SULFATE [Suspect]
     Route: 065
     Dates: start: 20120328, end: 20120329
  9. URSOLVAN [Concomitant]
     Route: 065
  10. XANAX [Concomitant]
     Route: 065
  11. CYTARABINE [Concomitant]
     Indication: ACUTE LEUKAEMIA
     Dosage: INTRASPINAL ROUTE
     Route: 065
     Dates: start: 20120307, end: 20120320
  12. VINCRISTINE SULFATE [Suspect]
     Route: 065
     Dates: start: 20120401, end: 20120101
  13. INNOHEP [Concomitant]
     Route: 065
  14. METHYLPREDNISOLONE [Concomitant]
     Indication: B-CELL TYPE ACUTE LEUKAEMIA
     Dosage: INTRATHECAL ROUTE
     Route: 065
     Dates: start: 20120307, end: 20120320
  15. MIRTAZAPINE [Concomitant]
     Route: 065
     Dates: end: 20120407
  16. ACUPAN [Suspect]
     Route: 065
     Dates: start: 20120401, end: 20120406
  17. SPRYCEL [Suspect]
     Route: 065
     Dates: start: 20120401, end: 20120401

REACTIONS (6)
  - RASH MACULO-PAPULAR [None]
  - RENAL FAILURE [None]
  - LYMPHOCYTOSIS [None]
  - DRUG RASH WITH EOSINOPHILIA AND SYSTEMIC SYMPTOMS [None]
  - CYTOLYTIC HEPATITIS [None]
  - EOSINOPHILIA [None]
